FAERS Safety Report 17913643 (Version 7)
Quarter: 2020Q4

REPORT INFORMATION
  Report Type: Spontaneous
  Country: US (occurrence: US)
  Receive Date: 20200618
  Receipt Date: 20201231
  Transmission Date: 20210113
  Serious: Yes (Death, Hospitalization, Other)
  Sender: FDA-Public Use
  Company Number: US-THERATECHNOLOGIES EUROPE LIMITED-2020-THE-IBA-000115

PATIENT
  Age: 73 Year
  Sex: Male
  Weight: 61.22 kg

DRUGS (3)
  1. BICTEGRAVIR;EMTRICITABINE;TENOFOVIR ALAFENAMI [Concomitant]
     Active Substance: BICTEGRAVIR\EMTRICITABINE\TENOFOVIR ALAFENAMIDE
     Indication: HIV INFECTION
     Dosage: UNK
     Route: 048
  2. TROGARZO [Suspect]
     Active Substance: IBALIZUMAB-UIYK
     Indication: HIV INFECTION
     Dosage: 800 MG EVERY 2 WEEKS, IV
     Route: 042
     Dates: start: 202001
  3. LASIX [Concomitant]
     Active Substance: FUROSEMIDE
     Indication: HIV INFECTION
     Dosage: 20 MG, UNK
     Route: 048
     Dates: start: 20200506

REACTIONS (8)
  - Cerebrovascular accident [Unknown]
  - Myocardial infarction [Unknown]
  - Joint swelling [Unknown]
  - Asthenia [Unknown]
  - Abdominal pain upper [Unknown]
  - Renal impairment [Not Recovered/Not Resolved]
  - Death [Fatal]
  - Oedema peripheral [Not Recovered/Not Resolved]

NARRATIVE: CASE EVENT DATE: 20201113
